FAERS Safety Report 7635828-8 (Version None)
Quarter: 2011Q3

REPORT INFORMATION
  Report Type: 
  Country: None (occurrence: None)
  Receive Date: 20110726
  Receipt Date: 20110712
  Transmission Date: 20111222
  Serious: Yes (Other)
  Sender: FDA-Public Use
  Company Number: NL-MYLANLABS-2011S1014456

PATIENT
  Age: 32 Year
  Sex: Female
  Weight: 59 kg

DRUGS (1)
  1. VENLAFAXINE [Suspect]
     Indication: DEPRESSION
     Dosage: 150 MG P.D. VERDEELD OVER TWEE CAPSULES
     Dates: start: 20090301

REACTIONS (2)
  - PERIODIC LIMB MOVEMENT DISORDER [None]
  - WITHDRAWAL SYNDROME [None]
